FAERS Safety Report 8128586-4 (Version None)
Quarter: 2012Q1

REPORT INFORMATION
  Report Type: 
  Country: None (occurrence: None)
  Receive Date: 20120210
  Receipt Date: 20111212
  Transmission Date: 20120608
  Serious: No
  Sender: FDA-Public Use
  Company Number: US-BRISTOL-MYERS SQUIBB COMPANY-16284762

PATIENT

DRUGS (1)
  1. ORENCIA [Suspect]
     Dosage: LAST INFUSION:09DEC2011

REACTIONS (2)
  - PAIN IN EXTREMITY [None]
  - MUSCLE TIGHTNESS [None]
